FAERS Safety Report 19418034 (Version 3)
Quarter: 2021Q3

REPORT INFORMATION
  Report Type: Report from Study
  Country: US (occurrence: US)
  Receive Date: 20210615
  Receipt Date: 20210816
  Transmission Date: 20211014
  Serious: No
  Sender: FDA-Public Use
  Company Number: US-B.I. PHARMACEUTICALS,INC./RIDGEFIELD-2021-BI-107870

PATIENT
  Age: 82 Year
  Sex: Male

DRUGS (2)
  1. EYE DROPS [NAPHAZOLINE HYDROCHLORIDE] [Concomitant]
     Indication: GLAUCOMA
  2. OFEV [Suspect]
     Active Substance: NINTEDANIB
     Indication: IDIOPATHIC PULMONARY FIBROSIS
     Dosage: ONE 150MG CAPSULE TWICE DAILY
     Route: 048
     Dates: start: 20210528

REACTIONS (6)
  - Vomiting [Recovered/Resolved]
  - Chills [Not Recovered/Not Resolved]
  - Fatigue [Not Recovered/Not Resolved]
  - Ventricular extrasystoles [Not Recovered/Not Resolved]
  - Feeling cold [Not Recovered/Not Resolved]
  - Vomiting [Recovered/Resolved]

NARRATIVE: CASE EVENT DATE: 20210603
